FAERS Safety Report 6831733-5 (Version None)
Quarter: 2010Q3

REPORT INFORMATION
  Report Type: 
  Country: None (occurrence: None)
  Receive Date: 20100712
  Receipt Date: 20100702
  Transmission Date: 20110219
  Serious: Yes (Life-Threatening, Hospitalization, Other)
  Sender: FDA-Public Use
  Company Number: DE-MPIJNJ-2010-03069

PATIENT

DRUGS (8)
  1. VELCADE [Suspect]
     Indication: MULTIPLE MYELOMA
     Dosage: 2.3 MG, CYCLIC
     Route: 042
     Dates: start: 20100608, end: 20100611
  2. VELCADE [Suspect]
     Dosage: 1 MG/M2, UNK
     Route: 042
  3. ACYCLOVIR [Concomitant]
     Indication: ANTIVIRAL PROPHYLAXIS
     Dosage: 800 MG, UNK
     Route: 048
     Dates: start: 20100608, end: 20100611
  4. MERONEM                            /01250501/ [Concomitant]
     Indication: SEPSIS
     Dosage: 2 G, UNK
     Route: 042
     Dates: start: 20100603, end: 20100611
  5. FORTECORTIN                        /00016001/ [Concomitant]
     Indication: CHEMOTHERAPY
     Dosage: 20 MG, UNK
     Route: 048
     Dates: start: 20100608, end: 20100609
  6. VFEND [Concomitant]
     Indication: SEPSIS
     Dosage: 200 MG, UNK
     Route: 048
     Dates: start: 20100603, end: 20100611
  7. CIPROFLOXACIN [Concomitant]
     Indication: SEPSIS
     Dosage: UNK
     Dates: start: 20100601
  8. PALLADON                           /00080902/ [Concomitant]
     Indication: PAIN
     Dosage: 24 MG, UNK
     Route: 048
     Dates: start: 20100518, end: 20100612

REACTIONS (3)
  - DELIRIUM [None]
  - HYPOTENSION [None]
  - PYREXIA [None]
